FAERS Safety Report 16898220 (Version 8)
Quarter: 2022Q3

REPORT INFORMATION
  Report Type: Spontaneous
  Country: GB (occurrence: GB)
  Receive Date: 20191009
  Receipt Date: 20220825
  Transmission Date: 20221026
  Serious: Yes (Other)
  Sender: FDA-Public Use
  Company Number: GB-SUN PHARMACEUTICAL INDUSTRIES LTD-2019RR-200433

PATIENT
  Sex: Male

DRUGS (24)
  1. DIHYDROCODEINE [Suspect]
     Active Substance: DIHYDROCODEINE
     Indication: Pain
     Dosage: FOUR TIMES DAILY. WITH OR JUST AFTER FOOD/MEAL
     Route: 065
  2. DIHYDROCODEINE [Suspect]
     Active Substance: DIHYDROCODEINE
     Dosage: 240 MILLIGRAM, Q6H,240 MG,Q6H,FOUR TIMES DAILY.WITH OR JUST AFTER FOOD MEAL
     Route: 065
  3. DIHYDROCODEINE [Suspect]
     Active Substance: DIHYDROCODEINE
     Dosage: 2 DF, Q6H, AS NECESSARY, TWO TO BE TAKEN 4 TIMES/DAY IF REQUIRED
     Route: 065
  4. DIHYDROCODEINE [Suspect]
     Active Substance: DIHYDROCODEINE
     Dosage: 2 DOSAGE FORM,AS NECESSARY,TWO TO BE TAKEN FOUR TIMES A DAY IF REQUIRED.RECEIVED 60 MG DOSE
     Route: 065
  5. DIHYDROCODEINE [Suspect]
     Active Substance: DIHYDROCODEINE
     Dosage: 240 MILLIGRAM, Q6H,240 MG,Q6H,FOUR TIMES DAILY.WITH OR JUST AFTER FOOD MEAL
     Route: 065
  6. DIHYDROCODEINE [Suspect]
     Active Substance: DIHYDROCODEINE
     Dosage: FOUR TIMES DAILY. WITH OR JUST AFTER FOOD/MEAL
     Route: 065
  7. DIHYDROCODEINE [Suspect]
     Active Substance: DIHYDROCODEINE
     Dosage: 60 MILLIGRAM, QID (FOUR TIMES DAILY.WITH OR JUST AFTER FOOD/MEAL)
     Route: 048
  8. DIHYDROCODEINE [Suspect]
     Active Substance: DIHYDROCODEINE
     Dosage: 60 MG, Q6H TWO TO BE TAKEN FOUR TIMES A DAY IF REQUIRED.
     Route: 048
  9. DIHYDROCODEINE [Suspect]
     Active Substance: DIHYDROCODEINE
     Dosage: 2 DF, Q6H, AS NECESSARY, TWO TO BE TAKEN 4 TIMES/DAY IF REQUIRED
     Route: 048
  10. DIHYDROCODEINE [Suspect]
     Active Substance: DIHYDROCODEINE
     Dosage: TWO TO BE TAKEN FOUR TIMES A DAY IF REQUIRED, AS NECESSARY
     Route: 048
  11. OLANZAPINE [Suspect]
     Active Substance: OLANZAPINE
     Indication: Product used for unknown indication
     Dosage: 5 MILLIGRAM, DAILY
     Route: 065
  12. OLANZAPINE [Suspect]
     Active Substance: OLANZAPINE
     Dosage: 10MG,DAILY
     Route: 065
  13. ESCITALOPRAM [Suspect]
     Active Substance: ESCITALOPRAM OXALATE
     Indication: Product used for unknown indication
     Dosage: MORNING
     Route: 065
  14. AZATHIOPRINE [Suspect]
     Active Substance: AZATHIOPRINE
     Indication: Colitis
     Dosage: MORNING, LUNCH AND TEA TIME (WITH OR JUST AFTER FOOD/MEAL)
     Route: 065
  15. AZATHIOPRINE [Suspect]
     Active Substance: AZATHIOPRINE
     Dosage: MORNING, LUNCH AND TEA TIME (WITH OR JUST AFTER FOOD/MEAL)
     Route: 065
  16. FERROUS FUMARATE [Suspect]
     Active Substance: FERROUS FUMARATE
     Indication: Anaemia
     Dosage: MORNING AND NIGHT
     Route: 065
  17. FERROUS FUMARATE [Suspect]
     Active Substance: FERROUS FUMARATE
     Dosage: MORNING AND NIGHT
     Route: 065
  18. FERROUS FUMARATE [Suspect]
     Active Substance: FERROUS FUMARATE
     Dosage: MORNING AND NIGHT
     Route: 065
  19. MIRTAZAPINE [Suspect]
     Active Substance: MIRTAZAPINE
     Indication: Product used for unknown indication
     Dosage: NIGHT
     Route: 065
  20. FOLIC ACID [Suspect]
     Active Substance: FOLIC ACID
     Indication: Folate deficiency
     Dosage: MORNING
     Route: 065
  21. PROMETHAZINE [Suspect]
     Active Substance: PROMETHAZINE HYDROCHLORIDE
     Indication: Product used for unknown indication
     Dosage: 25 MILLIGRAM, DAILY, AT NIGHT
     Route: 065
  22. IRON [Suspect]
     Active Substance: IRON
     Indication: Anaemia
     Dosage: 420 MILLIGRAM, DAILY, 210 MG, BID
     Route: 048
  23. DIHYDROCODEINE BITARTRATE [Suspect]
     Active Substance: DIHYDROCODEINE BITARTRATE
     Indication: Product used for unknown indication
     Route: 065
  24. PROMETHAZINE HYDROCHLORIDE [Suspect]
     Active Substance: PROMETHAZINE HYDROCHLORIDE
     Indication: Product used for unknown indication
     Route: 065

REACTIONS (3)
  - Seizure [Unknown]
  - Autoscopy [Unknown]
  - Overdose [Unknown]
